FAERS Safety Report 15793058 (Version 2)
Quarter: 2019Q1

REPORT INFORMATION
  Report Type: Report from Study
  Country: JP (occurrence: JP)
  Receive Date: 20190107
  Receipt Date: 20190306
  Transmission Date: 20190417
  Serious: Yes (Death)
  Sender: FDA-Public Use
  Company Number: JP-UCBSA-2018057392

PATIENT
  Age: 51 Year
  Sex: Female

DRUGS (9)
  1. E KEPPRA [Concomitant]
     Active Substance: LEVETIRACETAM
     Indication: FOCAL DYSCOGNITIVE SEIZURES
     Dosage: 2500 MG ONCE DAILY
     Route: 048
     Dates: end: 20180828
  2. LACOSAMIDE. [Suspect]
     Active Substance: LACOSAMIDE
     Indication: FOCAL DYSCOGNITIVE SEIZURES
     Dosage: 100 MG, ONCE DAILY (QD)
     Route: 048
     Dates: start: 20171227, end: 20180123
  3. LACOSAMIDE. [Suspect]
     Active Substance: LACOSAMIDE
     Dosage: 200 MG, ONCE DAILY (QD)
     Route: 048
     Dates: start: 20180124, end: 20180828
  4. TOPINA [Concomitant]
     Active Substance: TOPIRAMATE
     Indication: FOCAL DYSCOGNITIVE SEIZURES
     Dosage: 200 MG PER DAY
     Route: 048
     Dates: end: 20180828
  5. TEGRETOL [Concomitant]
     Active Substance: CARBAMAZEPINE
     Indication: FOCAL DYSCOGNITIVE SEIZURES
     Dosage: 800 MG PER DAY
     Route: 048
     Dates: end: 20180828
  6. DORAL [Concomitant]
     Active Substance: QUAZEPAM
     Indication: INSOMNIA
     Dosage: 20 MG PER DAY
     Route: 048
     Dates: end: 20180828
  7. URSO [Concomitant]
     Active Substance: URSODIOL
     Indication: LIVER DISORDER
     Dosage: 200 MG PER DAY
     Route: 048
     Dates: end: 20180828
  8. NAUZELIN [Concomitant]
     Active Substance: DOMPERIDONE
     Indication: NAUSEA
     Dosage: 30 MG PER DAY
     Route: 048
     Dates: end: 20180828
  9. BENZALIN (NITRAZEPAM) [Concomitant]
     Active Substance: NITRAZEPAM
     Indication: FOCAL DYSCOGNITIVE SEIZURES
     Dosage: 15 MG PER DAY
     Route: 048
     Dates: end: 20180828

REACTIONS (6)
  - Aspartate aminotransferase increased [Recovering/Resolving]
  - Death [Fatal]
  - Alanine aminotransferase increased [Recovering/Resolving]
  - Gamma-glutamyltransferase increased [Recovering/Resolving]
  - Off label use [Unknown]
  - Platelet count decreased [Unknown]

NARRATIVE: CASE EVENT DATE: 20171227
